FAERS Safety Report 6025325-8 (Version None)
Quarter: 2008Q4

REPORT INFORMATION
  Report Type: 
  Country: None (occurrence: None)
  Receive Date: 20081231
  Receipt Date: 20081229
  Transmission Date: 20090506
  Serious: Yes (Death)
  Sender: FDA-Public Use
  Company Number: US-CELGENEUS-163-21880-08120411

PATIENT
  Sex: Male

DRUGS (2)
  1. REVLIMID [Suspect]
     Indication: MYELODYSPLASTIC SYNDROME
     Route: 048
     Dates: start: 20071024, end: 20081101
  2. REVLIMID [Suspect]
     Route: 048
     Dates: start: 20070925, end: 20071001

REACTIONS (1)
  - MALIGNANT NEOPLASM PROGRESSION [None]
